FAERS Safety Report 15568869 (Version 1)
Quarter: 2018Q4

REPORT INFORMATION
  Report Type: Spontaneous
  Country: FR (occurrence: FR)
  Receive Date: 20181031
  Receipt Date: 20181031
  Transmission Date: 20190205
  Serious: Yes (Other)
  Sender: FDA-Public Use
  Company Number: FR-TEVA-2018-FR-969366

PATIENT
  Age: 70 Year
  Sex: Female
  Weight: 77 kg

DRUGS (6)
  1. KETAMINE [Concomitant]
     Active Substance: KETAMINE
     Route: 041
  2. VANCOMYCINE [Suspect]
     Active Substance: VANCOMYCIN
     Indication: ANTIBIOTIC PROPHYLAXIS
     Route: 041
     Dates: start: 201710, end: 201710
  3. NIMBEX [Concomitant]
     Active Substance: CISATRACURIUM BESYLATE
     Route: 041
  4. PROPOFOL. [Concomitant]
     Active Substance: PROPOFOL
     Route: 041
  5. SUFENTANIL [Concomitant]
     Active Substance: SUFENTANIL
     Route: 041
  6. XYLOCAINE [Concomitant]
     Active Substance: LIDOCAINE HYDROCHLORIDE
     Route: 041

REACTIONS (2)
  - Hypotension [Recovered/Resolved]
  - Erythema [Recovered/Resolved]

NARRATIVE: CASE EVENT DATE: 201710
